FAERS Safety Report 5630263-6 (Version None)
Quarter: 2008Q1

REPORT INFORMATION
  Report Type: 
  Country: None (occurrence: None)
  Receive Date: 20080219
  Receipt Date: 20080212
  Transmission Date: 20080703
  Serious: Yes (Hospitalization)
  Sender: FDA-Public Use
  Company Number: US-JNJFOC-20080202275

PATIENT
  Sex: Female
  Weight: 54.89 kg

DRUGS (35)
  1. INFLIXIMAB [Suspect]
  2. INFLIXIMAB [Suspect]
  3. INFLIXIMAB [Suspect]
  4. INFLIXIMAB [Suspect]
  5. INFLIXIMAB [Suspect]
  6. INFLIXIMAB [Suspect]
  7. INFLIXIMAB [Suspect]
  8. INFLIXIMAB [Suspect]
  9. INFLIXIMAB [Suspect]
  10. INFLIXIMAB [Suspect]
  11. INFLIXIMAB [Suspect]
  12. INFLIXIMAB [Suspect]
  13. INFLIXIMAB [Suspect]
  14. INFLIXIMAB [Suspect]
     Indication: CROHN'S DISEASE
     Dosage: 3 INFUSIONS OF INFLIXIMAB PRIOR TO BASELINE.
  15. STEROID [Concomitant]
     Indication: PREMEDICATION
  16. AZATHIOPRINE [Concomitant]
  17. NARCOTIC ANALGESICS [Concomitant]
  18. IMODIUM [Concomitant]
  19. ACETAMINOPHEN [Concomitant]
  20. ACETAMINOPHEN [Concomitant]
  21. ACETAMINOPHEN [Concomitant]
  22. ACETAMINOPHEN [Concomitant]
  23. ACETAMINOPHEN [Concomitant]
  24. ACETAMINOPHEN [Concomitant]
  25. ACETAMINOPHEN [Concomitant]
  26. ACETAMINOPHEN [Concomitant]
  27. ACETAMINOPHEN [Concomitant]
     Indication: PREMEDICATION
  28. ANTIHISTAMINE [Concomitant]
  29. ANTIHISTAMINE [Concomitant]
  30. ANTIHISTAMINE [Concomitant]
  31. ANTIHISTAMINE [Concomitant]
  32. ANTIHISTAMINE [Concomitant]
  33. ANTIHISTAMINE [Concomitant]
  34. ANTIHISTAMINE [Concomitant]
  35. ANTIHISTAMINE [Concomitant]
     Indication: PREMEDICATION

REACTIONS (2)
  - CROHN'S DISEASE [None]
  - MALABSORPTION [None]
